FAERS Safety Report 13460901 (Version 1)
Quarter: 2017Q2

REPORT INFORMATION
  Report Type: Report from Study
  Country: BE (occurrence: BE)
  Receive Date: 20170420
  Receipt Date: 20170420
  Transmission Date: 20170830
  Serious: Yes (Hospitalization)
  Sender: FDA-Public Use
  Company Number: BE-ROCHE-1220316

PATIENT
  Age: 42 Year
  Sex: Female
  Weight: 85.8 kg

DRUGS (21)
  1. CETIRIZINE [Concomitant]
     Active Substance: CETIRIZINE HYDROCHLORIDE
     Indication: PREMEDICATION
     Route: 065
     Dates: start: 20121105
  2. METHYLPREDNISOLONE. [Concomitant]
     Active Substance: METHYLPREDNISOLONE
     Indication: PREMEDICATION
     Route: 065
     Dates: start: 20121105
  3. HYGROTON [Concomitant]
     Active Substance: CHLORTHALIDONE
     Route: 065
     Dates: start: 201202, end: 201212
  4. PARACETAMOL [Concomitant]
     Active Substance: ACETAMINOPHEN
     Indication: PREMEDICATION
     Route: 065
     Dates: start: 20121105
  5. ZOVIRAX [Concomitant]
     Active Substance: ACYCLOVIR
     Route: 065
     Dates: start: 20130101, end: 20130110
  6. CLARITHROMYCIN. [Concomitant]
     Active Substance: CLARITHROMYCIN
     Route: 065
     Dates: start: 20130225, end: 201303
  7. FURADANTINE [Concomitant]
     Active Substance: NITROFURANTOIN
     Route: 065
     Dates: start: 20130319, end: 201303
  8. DAKTARIN (MICONAZOLE NITRATE) [Concomitant]
     Dosage: 1 UNIT.
     Route: 065
     Dates: start: 201305, end: 201306
  9. PLACEBO [Suspect]
     Active Substance: UNSPECIFIED INGREDIENT
     Indication: MULTIPLE SCLEROSIS RELAPSE
     Dosage: LAST DOSE PRIOR TO SAE: 24/APR/2013.
     Route: 058
     Dates: start: 20121105
  10. CIPROFLOXACINE [Concomitant]
     Active Substance: CIPROFLOXACIN
  11. REBIF [Concomitant]
     Active Substance: INTERFERON BETA-1A
     Route: 065
     Dates: start: 2003, end: 20121104
  12. OXYBUTYNIN [Concomitant]
     Active Substance: OXYBUTYNIN
     Route: 065
     Dates: start: 2007
  13. DAFALGAN [Concomitant]
     Active Substance: ACETAMINOPHEN
     Route: 065
     Dates: start: 20121110, end: 20121112
  14. IBUPROFEN. [Concomitant]
     Active Substance: IBUPROFEN
     Route: 065
     Dates: start: 201411, end: 20141203
  15. PLACEBO [Suspect]
     Active Substance: UNSPECIFIED INGREDIENT
     Route: 058
     Dates: start: 2003, end: 20121104
  16. ZOVIRAX [Concomitant]
     Active Substance: ACYCLOVIR
     Route: 065
     Dates: start: 20130325
  17. MERCILON [Concomitant]
     Active Substance: DESOGESTREL\ETHINYL ESTRADIOL
     Route: 065
     Dates: start: 201209
  18. OCRELIZUMAB [Suspect]
     Active Substance: OCRELIZUMAB
     Indication: MULTIPLE SCLEROSIS RELAPSE
     Dosage: LAST DOSE PRIOR TO SAE : 25/APR/2013. CYCLE 1 PATIENT RECEIVED A DUAL INFUSION OF BLINDED OCRELIZUMA
     Route: 042
     Dates: start: 20121105
  19. METHYLPREDNISOLONE. [Concomitant]
     Active Substance: METHYLPREDNISOLONE
     Route: 065
     Dates: start: 201201, end: 201201
  20. BEFACT FORTE [Concomitant]
     Dosage: B2: 10 MG, B1 250 MG, B6 250 MG AND B12 0.02 MG
     Route: 065
     Dates: start: 2008
  21. FLUCONAZOLE. [Concomitant]
     Active Substance: FLUCONAZOLE
     Route: 065
     Dates: start: 201305, end: 201305

REACTIONS (1)
  - Pyelonephritis [Recovered/Resolved]

NARRATIVE: CASE EVENT DATE: 20130429
